FAERS Safety Report 11728681 (Version 1)
Quarter: 2015Q4

REPORT INFORMATION
  Report Type: Spontaneous
  Country: US (occurrence: US)
  Receive Date: 20151110
  Receipt Date: 20151110
  Transmission Date: 20160304
  Serious: No
  Sender: FDA-Public Use
  Company Number: US-ELI_LILLY_AND_COMPANY-US201112002258

PATIENT
  Sex: Female

DRUGS (1)
  1. FORTEO [Suspect]
     Active Substance: TERIPARATIDE
     Indication: BONE DENSITY ABNORMAL
     Dosage: 20 MG, UNK

REACTIONS (4)
  - Drug prescribing error [Unknown]
  - Parathyroid gland operation [Unknown]
  - Blood calcium increased [Recovered/Resolved]
  - Bone density abnormal [Unknown]

NARRATIVE: CASE EVENT DATE: 2008
